FAERS Safety Report 5159623-7 (Version None)
Quarter: 2006Q4

REPORT INFORMATION
  Report Type: 
  Country: None (occurrence: None)
  Receive Date: 20061129
  Receipt Date: 20061006
  Transmission Date: 20070319
  Serious: Yes (Death, Life-Threatening)
  Sender: FDA-Public Use
  Company Number: JP-BRISTOL-MYERS SQUIBB COMPANY-13536271

PATIENT
  Age: 63 Year
  Sex: Female

DRUGS (10)
  1. VEPESID [Suspect]
     Indication: ADULT T-CELL LYMPHOMA/LEUKAEMIA
     Route: 041
     Dates: start: 20031015, end: 20031015
  2. VEPESID [Suspect]
     Indication: ADULT T-CELL LYMPHOMA/LEUKAEMIA
     Route: 048
     Dates: start: 20041220, end: 20041220
  3. ADRIAMYCIN PFS [Suspect]
     Indication: ADULT T-CELL LYMPHOMA/LEUKAEMIA
     Route: 041
     Dates: start: 20031027, end: 20031027
  4. PERAZOLIN [Suspect]
     Indication: ADULT T-CELL LYMPHOMA/LEUKAEMIA
     Route: 048
     Dates: start: 20040420, end: 20040511
  5. PARAPLATIN [Concomitant]
     Indication: ADULT T-CELL LYMPHOMA/LEUKAEMIA
     Route: 041
     Dates: start: 20030701, end: 20030701
  6. ONCOVIN [Concomitant]
     Route: 042
     Dates: start: 20030709, end: 20031027
  7. PREDNISOLONE [Concomitant]
     Dates: start: 20030701
  8. FILDESIN [Concomitant]
     Route: 042
     Dates: start: 20030724, end: 20030915
  9. ENDOXAN [Concomitant]
     Route: 041
     Dates: start: 20031109, end: 20031109
  10. CYMERIN [Concomitant]
     Route: 041
     Dates: start: 20030717, end: 20030717

REACTIONS (3)
  - ACUTE MYELOID LEUKAEMIA [None]
  - ATYPICAL MYCOBACTERIAL INFECTION [None]
  - MALIGNANT NEOPLASM PROGRESSION [None]
